FAERS Safety Report 5752622-3 (Version None)
Quarter: 2008Q2

REPORT INFORMATION
  Report Type: 
  Country: None (occurrence: None)
  Receive Date: 20080529
  Receipt Date: 20080521
  Transmission Date: 20081010
  Serious: Yes (Other)
  Sender: FDA-Public Use
  Company Number: FR-ASTRAZENECA-2008CG00377

PATIENT
  Age: 26427 Day
  Sex: Male
  Weight: 81 kg

DRUGS (3)
  1. CRESTOR [Suspect]
     Indication: HYPERCHOLESTEROLAEMIA
     Route: 048
     Dates: start: 20071122
  2. ASPIRIN [Concomitant]
     Dates: start: 20071110, end: 20071201
  3. ELISOR [Concomitant]
     Indication: HYPERCHOLESTEROLAEMIA
     Dates: start: 20071110, end: 20071121

REACTIONS (1)
  - TRANSIENT ISCHAEMIC ATTACK [None]
